FAERS Safety Report 9527763 (Version 1)
Quarter: 2013Q1

REPORT INFORMATION
  Report Type: Spontaneous
  Country: US (occurrence: None)
  Receive Date: 20130314
  Receipt Date: 20130314
  Transmission Date: 20140127
  Serious: No
  Sender: FDA-Public Use
  Company Number: 1302USA008889

PATIENT
  Age: 47 Year
  Sex: Male

DRUGS (3)
  1. RIBAVIRIN [Suspect]
     Indication: HEPATITIS C
     Dosage: 1200 MG, QD (1 IN 1 D)
     Dates: start: 20120620
  2. BOCEPREVIR [Suspect]
     Indication: HEPATITIS C
     Dosage: UNK
     Dates: start: 20120718
  3. PEGASYS [Suspect]
     Indication: HEPATITIS C

REACTIONS (5)
  - Prostatomegaly [None]
  - Scar [None]
  - Anorectal discomfort [None]
  - Feeling cold [None]
  - Fatigue [None]
